FAERS Safety Report 24843582 (Version 1)
Quarter: 2025Q1

REPORT INFORMATION
  Report Type: Spontaneous
  Country: US (occurrence: US)
  Receive Date: 20250115
  Receipt Date: 20250115
  Transmission Date: 20250408
  Serious: Yes (Hospitalization)
  Sender: JOHNSON AND JOHNSON
  Company Number: US-JNJFOC-20250107894

PATIENT
  Age: 61 Year
  Sex: Male
  Weight: 102.2 kg

DRUGS (1)
  1. TALQUETAMAB [Suspect]
     Active Substance: TALQUETAMAB
     Indication: Plasma cell myeloma
     Route: 058
     Dates: start: 20240801, end: 20241126

REACTIONS (3)
  - Rash morbilliform [Recovered/Resolved]
  - Pyrexia [Unknown]
  - Trismus [Unknown]

NARRATIVE: CASE EVENT DATE: 20240818
